FAERS Safety Report 15838302 (Version 2)
Quarter: 2019Q1

REPORT INFORMATION
  Report Type: Spontaneous
  Country: US (occurrence: US)
  Receive Date: 20190117
  Receipt Date: 20190118
  Transmission Date: 20190417
  Serious: Yes (Other)
  Sender: FDA-Public Use
  Company Number: US-PFIZER INC-2019019814

PATIENT
  Sex: Female

DRUGS (1)
  1. ZOLOFT [Suspect]
     Active Substance: SERTRALINE HYDROCHLORIDE
     Indication: GASTRIC DISORDER
     Dosage: 100 MG, UNK(DIDN^T TAKE A HALF OF A DOSE BUT TOOK A WHOLE DOSE,100MG)

REACTIONS (14)
  - Nausea [Unknown]
  - Paraesthesia [Unknown]
  - Incorrect dose administered [Unknown]
  - Aphasia [Unknown]
  - Vomiting [Unknown]
  - Hypoaesthesia [Unknown]
  - Dysstasia [Unknown]
  - Malaise [Unknown]
  - Product use in unapproved indication [Unknown]
  - Diarrhoea [Unknown]
  - Chest discomfort [Not Recovered/Not Resolved]
  - Myocardial infarction [Unknown]
  - Burning sensation [Unknown]
  - Palpitations [Not Recovered/Not Resolved]
